FAERS Safety Report 9909796 (Version 1)
Quarter: 2014Q1

REPORT INFORMATION
  Report Type: Spontaneous
  Country: US (occurrence: US)
  Receive Date: 20140219
  Receipt Date: 20140219
  Transmission Date: 20141002
  Serious: No
  Sender: FDA-Public Use
  Company Number: US-PFIZER INC-2014043195

PATIENT
  Age: 72 Year
  Sex: Female
  Weight: 56 kg

DRUGS (2)
  1. EXEMESTANE [Suspect]
     Indication: BREAST CANCER STAGE I
     Dosage: UNK,1X/DAY
     Dates: start: 201207, end: 2012
  2. EXEMESTANE [Suspect]
     Dosage: UNK,1X/DAY
     Dates: start: 201401

REACTIONS (5)
  - Dizziness [Unknown]
  - Balance disorder [Unknown]
  - Muscular weakness [Unknown]
  - Dysarthria [Unknown]
  - Dry eye [Unknown]
